FAERS Safety Report 6242352-6 (Version None)
Quarter: 2009Q2

REPORT INFORMATION
  Report Type: 
  Country: None (occurrence: None)
  Receive Date: 20090622
  Receipt Date: 20090622
  Transmission Date: 20091009
  Serious: No
  Sender: FDA-Public Use
  Company Number: None

PATIENT
  Age: 53 Year
  Sex: Male
  Weight: 95.2554 kg

DRUGS (1)
  1. ZICAM NASAL GEL 15 ML ZICAM [Suspect]
     Indication: NASOPHARYNGITIS
     Dosage: 1 SPRAY EVERY FOUR HOURS NASAL
     Route: 045
     Dates: start: 20080220, end: 20080227

REACTIONS (2)
  - HYPOSMIA [None]
  - PRODUCT QUALITY ISSUE [None]
